FAERS Safety Report 16336289 (Version 1)
Quarter: 2019Q2

REPORT INFORMATION
  Report Type: Spontaneous
  Country: US (occurrence: US)
  Receive Date: 20190520
  Receipt Date: 20190520
  Transmission Date: 20190711
  Serious: No
  Sender: FDA-Public Use
  Company Number: None

PATIENT
  Age: 26 Year
  Sex: Female
  Weight: 65.25 kg

DRUGS (6)
  1. LEXAPRO [Concomitant]
     Active Substance: ESCITALOPRAM OXALATE
  2. LORAZEPAM. [Concomitant]
     Active Substance: LORAZEPAM
  3. PROPRANOLOL [Concomitant]
     Active Substance: PROPRANOLOL HYDROCHLORIDE
  4. BUPROPION. [Concomitant]
     Active Substance: BUPROPION
  5. CLONIDINE. [Concomitant]
     Active Substance: CLONIDINE
  6. XULANE [Suspect]
     Active Substance: ETHINYL ESTRADIOL\NORELGESTROMIN
     Indication: CONTRACEPTION
     Dosage: ?          QUANTITY:1 PATCH(ES);OTHER FREQUENCY:1 PER WEEK;?
     Route: 062
     Dates: start: 20180722, end: 20190520

REACTIONS (4)
  - Application site pruritus [None]
  - Application site burn [None]
  - Application site scab [None]
  - Application site pain [None]

NARRATIVE: CASE EVENT DATE: 20190505
